FAERS Safety Report 20724209 (Version 2)
Quarter: 2022Q2

REPORT INFORMATION
  Report Type: Spontaneous
  Country: GB (occurrence: GB)
  Receive Date: 20220419
  Receipt Date: 20220426
  Transmission Date: 20220721
  Serious: Yes (Other)
  Sender: FDA-Public Use
  Company Number: ALC2022GB001804

PATIENT

DRUGS (1)
  1. MINERALS\VITAMINS [Suspect]
     Active Substance: MINERALS\VITAMINS
     Indication: Product used for unknown indication
     Dosage: UNK
     Route: 048

REACTIONS (5)
  - Choking [Recovered/Resolved]
  - Pharyngeal injury [Recovered/Resolved]
  - Oropharyngeal discomfort [Recovered/Resolved]
  - Product use complaint [Unknown]
  - Product physical consistency issue [Unknown]
